FAERS Safety Report 16662166 (Version 1)
Quarter: 2019Q3

REPORT INFORMATION
  Report Type: Spontaneous
  Country: US (occurrence: US)
  Receive Date: 20190802
  Receipt Date: 20190802
  Transmission Date: 20191004
  Serious: Yes (Hospitalization, Disabling)
  Sender: FDA-Public Use
  Company Number: None

PATIENT
  Age: 45 Year
  Sex: Male

DRUGS (4)
  1. LOSARTAN 50MG [Concomitant]
     Active Substance: LOSARTAN
  2. ATORVASTATIN 40MG [Concomitant]
     Active Substance: ATORVASTATIN
  3. NOVOLOG [Suspect]
     Active Substance: INSULIN ASPART
     Route: 058
  4. JARDIANCE [Concomitant]
     Active Substance: EMPAGLIFLOZIN

REACTIONS (2)
  - Ketoacidosis [None]
  - Blood glucose abnormal [None]

NARRATIVE: CASE EVENT DATE: 20190615
